FAERS Safety Report 11870905 (Version 1)
Quarter: 2015Q4

REPORT INFORMATION
  Report Type: Spontaneous
  Country: US (occurrence: None)
  Receive Date: 20151223
  Receipt Date: 20151223
  Transmission Date: 20160305
  Serious: Yes (Other)
  Sender: FDA-Public Use
  Company Number: None

PATIENT
  Age: 39 Year
  Sex: Female
  Weight: 99.34 kg

DRUGS (13)
  1. DURAGESIC [Concomitant]
     Active Substance: FENTANYL
  2. IMITREX [Concomitant]
     Active Substance: SUMATRIPTAN\SUMATRIPTAN SUCCINATE
  3. METRONIDAZOLE 500 MG [Suspect]
     Active Substance: METRONIDAZOLE
     Indication: ORAL INFECTION
     Route: 048
     Dates: start: 20150218, end: 20151223
  4. LYRICA [Concomitant]
     Active Substance: PREGABALIN
  5. BUSPIRONE [Concomitant]
     Active Substance: BUSPIRONE HYDROCHLORIDE
  6. CHLORTABS [Concomitant]
     Active Substance: CHLORPHENIRAMINE MALEATE
  7. TIZANIDINE. [Concomitant]
     Active Substance: TIZANIDINE
  8. CITALOPRAM [Concomitant]
     Active Substance: CITALOPRAM HYDROBROMIDE
  9. LORAZEPAM. [Concomitant]
     Active Substance: LORAZEPAM
  10. PRAVASTATIN [Concomitant]
     Active Substance: PRAVASTATIN\PRAVASTATIN SODIUM
  11. VERAPAMIL [Concomitant]
     Active Substance: VERAPAMIL HYDROCHLORIDE
  12. UROCIT-K SR [Concomitant]
  13. IBUPROFEN. [Concomitant]
     Active Substance: IBUPROFEN

REACTIONS (2)
  - Panic attack [None]
  - Condition aggravated [None]

NARRATIVE: CASE EVENT DATE: 20151219
